FAERS Safety Report 25925741 (Version 2)
Quarter: 2025Q4

REPORT INFORMATION
  Report Type: Report from Study
  Country: UA (occurrence: UA)
  Receive Date: 20251015
  Receipt Date: 20251217
  Transmission Date: 20260118
  Serious: Yes (Death, Life-Threatening, Hospitalization, Other)
  Sender: PFIZER
  Company Number: UA-TAKEDA-2025TUS073526

PATIENT
  Age: 36 Year
  Sex: Male

DRUGS (4)
  1. ADCETRIS [Suspect]
     Active Substance: BRENTUXIMAB VEDOTIN
     Indication: Anaplastic large cell lymphoma T- and null-cell types
     Dosage: 200 MILLIGRAM, EVERY (Q) 3 WEEKS
     Route: 042
     Dates: start: 20250721
  2. PREDNISONE [Suspect]
     Active Substance: PREDNISONE
     Indication: Anaplastic large cell lymphoma T- and null-cell types
     Dosage: UNK
     Dates: start: 20250721
  3. CYCLOPHOSPHAMIDE [Suspect]
     Active Substance: CYCLOPHOSPHAMIDE
     Indication: Anaplastic large cell lymphoma T- and null-cell types
     Dosage: UNK
     Dates: start: 20250721
  4. DOXORUBICIN HYDROCHLORIDE [Suspect]
     Active Substance: DOXORUBICIN HYDROCHLORIDE
     Indication: Anaplastic large cell lymphoma T- and null-cell types
     Dosage: UNK
     Dates: start: 20250721

REACTIONS (13)
  - Multiple organ dysfunction syndrome [Fatal]
  - Pneumonia necrotising [Unknown]
  - Hydrothorax [Unknown]
  - Hepatic infarction [Unknown]
  - Ascites [Unknown]
  - Muscle abscess [Unknown]
  - Gallbladder disorder [Unknown]
  - Pyopneumothorax [Unknown]
  - Pericardial effusion [Unknown]
  - Pulmonary hypertension [Unknown]
  - Tricuspid valve incompetence [Unknown]
  - Pyelonephritis [Unknown]
  - Cellulitis [Unknown]

NARRATIVE: CASE EVENT DATE: 20251005
